FAERS Safety Report 5518668-5 (Version None)
Quarter: 2007Q4

REPORT INFORMATION
  Report Type: 
  Country: None (occurrence: None)
  Receive Date: 20071113
  Receipt Date: 20071026
  Transmission Date: 20080405
  Serious: Yes (Life-Threatening)
  Sender: FDA-Public Use
  Company Number: GXKR2007PL09295

PATIENT
  Age: 15 Year
  Sex: Female

DRUGS (2)
  1. PROPRANOLOL [Suspect]
     Dosage: ORAL
     Route: 048
  2. VERAPAMIL [Suspect]
     Dosage: ORAL
     Route: 048

REACTIONS (5)
  - CARDIAC ARREST [None]
  - CIRCULATORY COLLAPSE [None]
  - DRUG INTERACTION [None]
  - MULTIPLE DRUG OVERDOSE INTENTIONAL [None]
  - SUICIDE ATTEMPT [None]
